FAERS Safety Report 24014874 (Version 1)
Quarter: 2024Q2

REPORT INFORMATION
  Report Type: Spontaneous
  Country: US (occurrence: None)
  Receive Date: 20240625
  Receipt Date: 20240625
  Transmission Date: 20240716
  Serious: Yes (Hospitalization)
  Sender: FDA-Public Use
  Company Number: None

PATIENT
  Sex: Female

DRUGS (2)
  1. TACROLIMUS [Suspect]
     Active Substance: TACROLIMUS
     Indication: Renal transplant
     Dosage: OTHER QUANTITY : TAKE 2 CAPSULES;?FREQUENCY : EVERY 12 HOURS;?
     Route: 048
     Dates: start: 20230412
  2. PROGRAF [Concomitant]
     Active Substance: TACROLIMUS

REACTIONS (1)
  - Surgery [None]
